FAERS Safety Report 8156811-2 (Version None)
Quarter: 2012Q1

REPORT INFORMATION
  Report Type: 
  Country: None (occurrence: None)
  Receive Date: 20120222
  Receipt Date: 20120216
  Transmission Date: 20120608
  Serious: Yes (Hospitalization)
  Sender: FDA-Public Use
  Company Number: US-GLAXOSMITHKLINE-A0886632A

PATIENT
  Age: 49 Year
  Sex: Female

DRUGS (2)
  1. AVANDAMET [Suspect]
     Indication: DIABETES MELLITUS
     Dates: start: 20040101, end: 20070901
  2. AVANDIA [Suspect]
     Indication: DIABETES MELLITUS
     Dosage: 8MG PER DAY
     Route: 048
     Dates: start: 20030201, end: 20040101

REACTIONS (7)
  - LOSS OF CONSCIOUSNESS [None]
  - BACK INJURY [None]
  - CHRONIC OBSTRUCTIVE PULMONARY DISEASE [None]
  - LIMB INJURY [None]
  - SPINAL FRACTURE [None]
  - TRANSIENT ISCHAEMIC ATTACK [None]
  - STENT PLACEMENT [None]
